FAERS Safety Report 7286693-2 (Version None)
Quarter: 2011Q1

REPORT INFORMATION
  Report Type: 
  Country: None (occurrence: None)
  Receive Date: 20110210
  Receipt Date: 20110201
  Transmission Date: 20110831
  Serious: Yes (Hospitalization, Other)
  Sender: FDA-Public Use
  Company Number: US-ELI_LILLY_AND_COMPANY-US200911006262

PATIENT
  Sex: Female

DRUGS (4)
  1. ORENCIA [Concomitant]
  2. METHOTREXATE [Concomitant]
  3. PREDNISONE [Concomitant]
  4. FORTEO [Suspect]
     Dosage: 20 UG, DAILY (1/D)
     Route: 058
     Dates: start: 20090909

REACTIONS (2)
  - DEVICE RELATED INFECTION [None]
  - RHEUMATOID ARTHRITIS [None]
